FAERS Safety Report 9197267 (Version 1)
Quarter: 2013Q1

REPORT INFORMATION
  Report Type: Spontaneous
  Country: US (occurrence: US)
  Receive Date: 20130328
  Receipt Date: 20130328
  Transmission Date: 20140127
  Serious: Yes (Other)
  Sender: FDA-Public Use
  Company Number: US-ASTRAZENECA-2013SE18103

PATIENT
  Age: 57 Year
  Sex: Female
  Weight: 77.1 kg

DRUGS (3)
  1. NEXIUM [Suspect]
     Indication: BARRETT^S OESOPHAGUS
     Route: 048
     Dates: start: 2005
  2. NORVASC [Concomitant]
     Indication: HYPERTENSION
     Dates: start: 201301
  3. ZOLOFT [Concomitant]
     Indication: PAIN
     Dates: start: 201301

REACTIONS (6)
  - Acoustic neuroma [Unknown]
  - Osteopenia [Not Recovered/Not Resolved]
  - Body height decreased [Unknown]
  - Dyspepsia [Unknown]
  - Off label use [Unknown]
  - Off label use [Unknown]
